FAERS Safety Report 24756986 (Version 1)
Quarter: 2024Q4

REPORT INFORMATION
  Report Type: Spontaneous
  Country: CN (occurrence: CN)
  Receive Date: 20241220
  Receipt Date: 20241220
  Transmission Date: 20250114
  Serious: Yes (Hospitalization)
  Sender: ABBVIE
  Company Number: CN-ABBVIE-6054888

PATIENT
  Age: 21 Year
  Sex: Male
  Weight: 85 kg

DRUGS (3)
  1. VENETOCLAX [Suspect]
     Active Substance: VENETOCLAX
     Indication: Leukaemia
     Dosage: 400 MILLIGRAM
     Route: 048
     Dates: start: 20241204, end: 20241208
  2. DECITABINE [Suspect]
     Active Substance: DECITABINE
     Indication: Leukaemia
     Dosage: 39.8 MILLIGRAM
     Route: 041
     Dates: start: 20241202, end: 20241206
  3. Human Granulocyte Colony-stimulating Factor Injection [Concomitant]
     Indication: Product used for unknown indication

REACTIONS (1)
  - Myelosuppression [Recovering/Resolving]

NARRATIVE: CASE EVENT DATE: 20241207
